FAERS Safety Report 19687179 (Version 3)
Quarter: 2023Q2

REPORT INFORMATION
  Report Type: Report from Study
  Country: CN (occurrence: None)
  Receive Date: 20210811
  Receipt Date: 20230417
  Transmission Date: 20230722
  Serious: Yes (Hospitalization)
  Sender: FDA-Public Use
  Company Number: CN-EISAI MEDICAL RESEARCH-EC-2021-097570

PATIENT
  Age: 67 Year
  Sex: Female
  Weight: 56 kg

DRUGS (14)
  1. LENVATINIB [Suspect]
     Active Substance: LENVATINIB
     Indication: Non-small cell lung cancer metastatic
     Route: 048
     Dates: start: 20210702
  2. PEMBROLIZUMAB [Suspect]
     Active Substance: PEMBROLIZUMAB
     Indication: Non-small cell lung cancer metastatic
     Route: 041
     Dates: start: 20210702, end: 20210702
  3. PEMBROLIZUMAB [Suspect]
     Active Substance: PEMBROLIZUMAB
     Route: 041
     Dates: start: 20210726
  4. PEMETREXED [Suspect]
     Active Substance: PEMETREXED
     Indication: Non-small cell lung cancer metastatic
     Dosage: (TOTAL DAILY DOSE: 773 MG)
     Route: 041
     Dates: start: 20210702, end: 20210702
  5. PEMETREXED [Suspect]
     Active Substance: PEMETREXED
     Dosage: (TOTAL DAILY DOSE: 773 MG)
     Route: 041
     Dates: start: 20210726
  6. CISPLATIN [Suspect]
     Active Substance: CISPLATIN
     Indication: Non-small cell lung cancer metastatic
     Dosage: DOSE UNKNOWN
     Route: 041
     Dates: start: 20210702, end: 20210702
  7. AMLODIPINE BESYLATE [Concomitant]
     Active Substance: AMLODIPINE BESYLATE
     Dates: start: 201301
  8. IRBESARTAN [Concomitant]
     Active Substance: IRBESARTAN
     Dates: start: 201301, end: 20211111
  9. ASPIRIN [Concomitant]
     Active Substance: ASPIRIN
     Dates: start: 201301, end: 20211111
  10. GLICLAZIDE [Concomitant]
     Active Substance: GLICLAZIDE
     Dates: start: 201401
  11. METFORMIN HYDROCHLORIDE [Concomitant]
     Active Substance: METFORMIN HYDROCHLORIDE
     Dates: start: 201401
  12. ACARBOSE [Concomitant]
     Active Substance: ACARBOSE
     Dates: start: 201401
  13. HYDROCHLOROTHIAZIDE\OLMESARTAN MEDOXOMIL [Concomitant]
     Active Substance: HYDROCHLOROTHIAZIDE\OLMESARTAN MEDOXOMIL
     Dates: start: 20210614, end: 20211112
  14. MINERALS\VITAMINS [Concomitant]
     Active Substance: MINERALS\VITAMINS
     Dates: start: 20210521

REACTIONS (1)
  - Gastric mucosal lesion [Recovered/Resolved]

NARRATIVE: CASE EVENT DATE: 20210705
